FAERS Safety Report 23585408 (Version 1)
Quarter: 2024Q1

REPORT INFORMATION
  Report Type: Other
  Country: JP (occurrence: JP)
  Receive Date: 20240301
  Receipt Date: 20240301
  Transmission Date: 20240410
  Serious: Yes (Other)
  Sender: FDA-Public Use
  Company Number: JP-BIOLOGICAL E. LTD-2153910

PATIENT
  Age: 59 Year
  Sex: Male
  Weight: 65.1 kg

DRUGS (6)
  1. PHENYLEPHRINE HYDROCHLORIDE [Suspect]
     Active Substance: PHENYLEPHRINE HYDROCHLORIDE
     Route: 065
  2. REMIFENTANIL HYDROCHLORIDE [Suspect]
     Active Substance: REMIFENTANIL HYDROCHLORIDE
     Route: 065
  3. NOREPINEPHRINE [Suspect]
     Active Substance: NOREPINEPHRINE\NOREPINEPHRINE BITARTRATE
     Route: 065
  4. EPHEDRINE [Suspect]
     Active Substance: EPHEDRINE
     Route: 065
  5. ROCURONIUM [Suspect]
     Active Substance: ROCURONIUM BROMIDE
     Route: 065
  6. REMIMAZOLAM [Suspect]
     Active Substance: REMIMAZOLAM
     Route: 065

REACTIONS (1)
  - Drug ineffective [Unknown]
